FAERS Safety Report 4687807-0 (Version None)
Quarter: 2005Q2

REPORT INFORMATION
  Report Type: 
  Country: None (occurrence: None)
  Receive Date: 20050610
  Receipt Date: 20050606
  Transmission Date: 20051028
  Serious: Yes (Other)
  Sender: FDA-Public Use
  Company Number: PHBS2005ES08076

PATIENT
  Age: 76 Year
  Sex: Male

DRUGS (1)
  1. LESCOL [Suspect]
     Indication: HYPERCHOLESTEROLAEMIA
     Dosage: 80 MG, QD
     Route: 048
     Dates: start: 20050428

REACTIONS (3)
  - DIZZINESS [None]
  - SYNCOPE [None]
  - VOMITING [None]
